FAERS Safety Report 9592424 (Version 1)
Quarter: 2013Q3

REPORT INFORMATION
  Report Type: Spontaneous
  Country: US (occurrence: None)
  Receive Date: 20130930
  Receipt Date: 20130930
  Transmission Date: 20140515
  Serious: Yes (Other)
  Sender: FDA-Public Use
  Company Number: 1000046795

PATIENT
  Age: 80 Year
  Sex: Female

DRUGS (6)
  1. LINZESS [Suspect]
     Indication: CONSTIPATION
     Dosage: 290 MCG (290 MCG, 1 IN 1 D), ORAL
     Route: 048
     Dates: start: 20130709
  2. CARAFATE (SUCRALFATE) (SUCRALFATE) [Concomitant]
  3. PROLIA (DENOSUMAB) (DENOSUMAB) [Concomitant]
  4. ATACAND (CANDESARTAN CILEXETIL) (CANDESARTAN CILEXETIL) [Concomitant]
  5. VITAMIN B-12 (CYANOCOBALAMIN) (CYANOCOBALAMIN) [Concomitant]
  6. TAGAMENT (CIMETIDINE) (CIMETIDINE) [Concomitant]

REACTIONS (1)
  - Abdominal pain upper [None]
